FAERS Safety Report 18469140 (Version 4)
Quarter: 2022Q4

REPORT INFORMATION
  Report Type: Spontaneous
  Country: US (occurrence: US)
  Receive Date: 20201105
  Receipt Date: 20221020
  Transmission Date: 20230113
  Serious: No
  Sender: FDA-Public Use
  Company Number: US-PFIZER INC-2020428007

PATIENT
  Age: 66 Year
  Sex: Female

DRUGS (2)
  1. XELJANZ [Suspect]
     Active Substance: TOFACITINIB CITRATE
     Dosage: 5 MG, 2X/DAY
  2. XELJANZ [Suspect]
     Active Substance: TOFACITINIB CITRATE
     Dosage: 5 MG, 1X/DAY

REACTIONS (8)
  - Dizziness [Unknown]
  - Headache [Unknown]
  - C-reactive protein increased [Unknown]
  - Inflammation [Unknown]
  - Bronchial disorder [Unknown]
  - Illness [Unknown]
  - Decreased immune responsiveness [Unknown]
  - Accident [Unknown]
